FAERS Safety Report 5394948-1 (Version None)
Quarter: 2007Q3

REPORT INFORMATION
  Report Type: 
  Country: None (occurrence: None)
  Receive Date: 20070720
  Receipt Date: 20070710
  Transmission Date: 20080115
  Serious: Yes (Hospitalization, Other)
  Sender: FDA-Public Use
  Company Number: FABR-11930

PATIENT
  Age: 56 Year
  Sex: Male
  Weight: 67.1324 kg

DRUGS (10)
  1. FABRAZYME [Suspect]
     Indication: FABRY'S DISEASE
     Dosage: 70 MG Q2WKS IV
     Route: 042
     Dates: start: 20030503
  2. PLAVIX [Concomitant]
  3. HYDROCHLOROTHIAZIDE [Concomitant]
  4. COUMADIN [Concomitant]
  5. METOPROLOL SUCCINATE [Concomitant]
  6. NITROGLYCERIN [Concomitant]
  7. LIPITOR [Concomitant]
  8. MONOCOR [Concomitant]
  9. ALTACE [Concomitant]
  10. SERAX [Concomitant]

REACTIONS (10)
  - ANAEMIA [None]
  - BUNDLE BRANCH BLOCK LEFT [None]
  - BUNDLE BRANCH BLOCK RIGHT [None]
  - ELECTROCARDIOGRAM ST-T CHANGE [None]
  - GASTRITIS [None]
  - LEFT ATRIAL DILATATION [None]
  - MYOCARDIAL INFARCTION [None]
  - PAIN IN EXTREMITY [None]
  - TRICUSPID VALVE INCOMPETENCE [None]
  - UPPER GASTROINTESTINAL HAEMORRHAGE [None]
